FAERS Safety Report 19609643 (Version 3)
Quarter: 2022Q1

REPORT INFORMATION
  Report Type: Spontaneous
  Country: US (occurrence: None)
  Receive Date: 20210726
  Receipt Date: 20220322
  Transmission Date: 20220424
  Serious: Yes (Disabling, Other)
  Sender: FDA-Public Use
  Company Number: 2021A629920

PATIENT
  Age: 61 Year
  Sex: Male
  Weight: 90.7 kg

DRUGS (54)
  1. NEXIUM [Suspect]
     Active Substance: ESOMEPRAZOLE MAGNESIUM
     Indication: Gastrooesophageal reflux disease
     Dosage: UNKNOWN
     Route: 048
     Dates: start: 2011, end: 2018
  2. NEXIUM [Suspect]
     Active Substance: ESOMEPRAZOLE MAGNESIUM
     Indication: Gastrooesophageal reflux disease
     Dosage: UNKNOWN
     Route: 048
     Dates: start: 2011, end: 2018
  3. NEXIUM [Suspect]
     Active Substance: ESOMEPRAZOLE MAGNESIUM
     Indication: Gastrooesophageal reflux disease
     Dosage: UNKNOWN
     Route: 048
     Dates: start: 2001, end: 2018
  4. NEXIUM [Suspect]
     Active Substance: ESOMEPRAZOLE MAGNESIUM
     Indication: Gastrooesophageal reflux disease
     Dosage: UNKNOWN
     Route: 048
     Dates: start: 2001, end: 2018
  5. NEXIUM [Suspect]
     Active Substance: ESOMEPRAZOLE MAGNESIUM
     Indication: Gastrooesophageal reflux disease
     Dosage: GENERIC
     Route: 065
     Dates: start: 2015, end: 2019
  6. NEXIUM [Suspect]
     Active Substance: ESOMEPRAZOLE MAGNESIUM
     Indication: Gastrooesophageal reflux disease
     Dosage: GENERIC
     Route: 065
     Dates: start: 2015, end: 2019
  7. NEXIUM 24HR [Suspect]
     Active Substance: ESOMEPRAZOLE MAGNESIUM
     Indication: Gastrooesophageal reflux disease
     Dosage: DOSAGE AS RECOMMENDED
     Route: 048
     Dates: start: 2014, end: 2019
  8. NEXIUM 24HR [Suspect]
     Active Substance: ESOMEPRAZOLE MAGNESIUM
     Indication: Gastrooesophageal reflux disease
     Dosage: DOSAGE AS RECOMMENDED
     Route: 048
     Dates: start: 2014, end: 2019
  9. PROTONIX [Suspect]
     Active Substance: PANTOPRAZOLE SODIUM
     Dosage: UNKNOWN
     Route: 048
     Dates: start: 2002
  10. DOXYCYCLINE [Concomitant]
     Active Substance: DOXYCYCLINE
     Indication: Infection
     Route: 065
     Dates: start: 201707
  11. ENALAPRIL [Concomitant]
     Active Substance: ENALAPRIL
     Indication: Blood pressure measurement
     Route: 065
     Dates: start: 201401, end: 2018
  12. LISINOPRIL [Concomitant]
     Active Substance: LISINOPRIL
     Indication: Blood pressure measurement
     Route: 065
     Dates: start: 201401, end: 2018
  13. PRINIVIL [Concomitant]
     Active Substance: LISINOPRIL
     Indication: Blood pressure measurement
     Route: 065
     Dates: start: 201401, end: 2018
  14. LASIX [Concomitant]
     Active Substance: FUROSEMIDE
     Indication: Nephropathy
     Route: 065
     Dates: start: 201807
  15. HYDROCHLOROTHIAZIDE [Concomitant]
     Active Substance: HYDROCHLOROTHIAZIDE
     Indication: Blood pressure measurement
     Route: 065
     Dates: start: 2018, end: 2020
  16. ACETYLSALICYLIC ACID/ATORVASTATIN [Concomitant]
     Indication: Cardiac disorder
     Route: 065
     Dates: start: 201407, end: 201905
  17. CARBAMAZEPINE [Concomitant]
     Active Substance: CARBAMAZEPINE
     Indication: Behavioural therapy
     Route: 065
     Dates: start: 201407
  18. FLUOXETINE [Concomitant]
     Active Substance: FLUOXETINE HYDROCHLORIDE
     Indication: Behavioural therapy
     Route: 065
     Dates: start: 200712
  19. ASPIRIN [Concomitant]
     Active Substance: ASPIRIN
     Indication: Routine health maintenance
  20. ZANTAC [Concomitant]
     Active Substance: RANITIDINE HYDROCHLORIDE
  21. TUMS [Concomitant]
     Active Substance: CALCIUM CARBONATE
  22. HYDROMORPHONE [Concomitant]
     Active Substance: HYDROMORPHONE
  23. OXYCODONE [Concomitant]
     Active Substance: OXYCODONE
  24. MAGNESIUM OXIDE [Concomitant]
     Active Substance: MAGNESIUM OXIDE
  25. METFORMIN [Concomitant]
     Active Substance: METFORMIN HYDROCHLORIDE
  26. GABAPENTIN [Concomitant]
     Active Substance: GABAPENTIN
  27. LEXAPRO [Concomitant]
     Active Substance: ESCITALOPRAM OXALATE
  28. ALBUTEROL [Concomitant]
     Active Substance: ALBUTEROL
  29. LOPRESSOR [Concomitant]
     Active Substance: METOPROLOL TARTRATE
  30. PERCOCET [Concomitant]
     Active Substance: ACETAMINOPHEN\OXYCODONE HYDROCHLORIDE
  31. JANUVIA [Concomitant]
     Active Substance: SITAGLIPTIN PHOSPHATE
  32. ADDERALL [Concomitant]
     Active Substance: AMPHETAMINE ASPARTATE\AMPHETAMINE SULFATE\DEXTROAMPHETAMINE SACCHARATE\DEXTROAMPHETAMINE SULFATE
  33. AMBIEN [Concomitant]
     Active Substance: ZOLPIDEM TARTRATE
  34. SODIUM CHLORIDE [Concomitant]
     Active Substance: SODIUM CHLORIDE
  35. SODIUM BICARBONATE [Concomitant]
     Active Substance: SODIUM BICARBONATE
  36. HUMULIN NOS [Concomitant]
     Active Substance: INSULIN HUMAN
  37. HEPARIN [Concomitant]
     Active Substance: HEPARIN SODIUM
  38. NARCAN [Concomitant]
     Active Substance: NALOXONE HYDROCHLORIDE
  39. LACTATED RINGERS SOLUTION [Concomitant]
     Active Substance: CALCIUM CHLORIDE\POTASSIUM CHLORIDE\SODIUM CHLORIDE\SODIUM LACTATE
  40. XANAX [Concomitant]
     Active Substance: ALPRAZOLAM
  41. VITAMIN D2 [Concomitant]
     Active Substance: ERGOCALCIFEROL
  42. GEMFIBROZIL [Concomitant]
     Active Substance: GEMFIBROZIL
  43. NICOTINE [Concomitant]
     Active Substance: NICOTINE
  44. VIAGRA [Concomitant]
     Active Substance: SILDENAFIL CITRATE
  45. CELEXA [Concomitant]
     Active Substance: CITALOPRAM HYDROBROMIDE
  46. ANDROGEL [Concomitant]
     Active Substance: TESTOSTERONE
  47. CYMBALTA [Concomitant]
     Active Substance: DULOXETINE HYDROCHLORIDE
  48. LIBIDO [Concomitant]
  49. CICLOPIROX [Concomitant]
     Active Substance: CICLOPIROX
  50. BACTROBAN [Concomitant]
     Active Substance: MUPIROCIN\MUPIROCIN CALCIUM
  51. RHINOCORT [Concomitant]
     Active Substance: BUDESONIDE
  52. DOXYCYCLINE [Concomitant]
     Active Substance: DOXYCYCLINE
  53. ARIPIPRAZOLE [Concomitant]
     Active Substance: ARIPIPRAZOLE
  54. LIDOCAINE [Concomitant]
     Active Substance: LIDOCAINE

REACTIONS (5)
  - Acute kidney injury [Not Recovered/Not Resolved]
  - Chronic kidney disease [Not Recovered/Not Resolved]
  - Nephropathy [Unknown]
  - Renal failure [Unknown]
  - Renal tubular necrosis [Unknown]

NARRATIVE: CASE EVENT DATE: 20180101
